FAERS Safety Report 9565332 (Version 2)
Quarter: 2013Q4

REPORT INFORMATION
  Report Type: Spontaneous
  Country: US (occurrence: US)
  Receive Date: 20130930
  Receipt Date: 20131027
  Transmission Date: 20140711
  Serious: No
  Sender: FDA-Public Use
  Company Number: US-009507513-1309USA012554

PATIENT
  Age: 34 Year
  Sex: Male
  Weight: 90.7 kg

DRUGS (1)
  1. SAPHRIS [Suspect]
     Indication: SCHIZOPHRENIA
     Dosage: TOTAL DAILY DOSE 5
     Route: 060
     Dates: start: 20130904, end: 20130910

REACTIONS (2)
  - Drug ineffective [Unknown]
  - Sedation [Recovered/Resolved]
